FAERS Safety Report 4280600-2 (Version None)
Quarter: 2004Q1

REPORT INFORMATION
  Report Type: 
  Country: None (occurrence: None)
  Receive Date: 20040127
  Receipt Date: 20040114
  Transmission Date: 20041129
  Serious: Yes (Death, Hospitalization, Other)
  Sender: FDA-Public Use
  Company Number: 2004002737

PATIENT
  Age: 60 Year
  Sex: Female

DRUGS (6)
  1. PHENYTOIN [Suspect]
     Indication: ILL-DEFINED DISORDER
     Dosage: 300 MG (100 TID)
  2. BACTRIM [Suspect]
     Indication: URINARY TRACT INFECTION
     Dosage: 1600 MG (800 BID)
  3. CIMETIDINE HCL [Concomitant]
  4. HEPARIN [Concomitant]
  5. DOCUSATE SODIUM [Concomitant]
  6. CLONIDINE HCL [Concomitant]

REACTIONS (15)
  - CEREBRAL HAEMORRHAGE [None]
  - DRUG INTERACTION [None]
  - DUODENAL ULCER HAEMORRHAGE [None]
  - HEPATIC FAILURE [None]
  - HEPATIC FIBROSIS [None]
  - HEPATIC NECROSIS [None]
  - HEPATOTOXICITY [None]
  - HYPERREFLEXIA [None]
  - LETHARGY [None]
  - MENTAL STATUS CHANGES [None]
  - RENAL FAILURE [None]
  - SENSORY DISTURBANCE [None]
  - SHOCK [None]
  - SOMNOLENCE [None]
  - UROSEPSIS [None]
